FAERS Safety Report 5994787-4 (Version None)
Quarter: 2008Q4

REPORT INFORMATION
  Report Type: 
  Country: None (occurrence: None)
  Receive Date: 20081212
  Receipt Date: 20080915
  Transmission Date: 20090506
  Serious: No
  Sender: FDA-Public Use
  Company Number: US-ABBOTT-08P-163-0476284-00

PATIENT
  Sex: Female
  Weight: 67.192 kg

DRUGS (14)
  1. HUMIRA [Suspect]
     Indication: RHEUMATOID ARTHRITIS
     Dates: start: 20070701, end: 20080701
  2. PREDNISONE TAB [Concomitant]
     Indication: RHEUMATOID ARTHRITIS
     Route: 048
     Dates: start: 20060501
  3. ESTODIAL [Concomitant]
     Indication: HYSTERECTOMY
     Route: 048
     Dates: start: 19990601
  4. NARINE [Concomitant]
     Indication: HYPERSENSITIVITY
     Route: 048
     Dates: start: 19940401
  5. METFORMIN HCL [Concomitant]
     Indication: TYPE 2 DIABETES MELLITUS
     Dosage: 500MG DAILY AT BEDTIME
     Route: 048
     Dates: start: 19960901
  6. MONTELUKAST SODIUM [Concomitant]
     Indication: ASTHMA
     Dosage: 10MG DAILY AT BEDTIME
     Route: 048
     Dates: start: 19980101
  7. FENOFIBRATE [Concomitant]
     Indication: BLOOD CHOLESTEROL INCREASED
     Dosage: 48MG DAILY AT BEDTIME
     Route: 048
     Dates: start: 20071201
  8. LISINOPRIL [Concomitant]
     Indication: PROPHYLAXIS
     Route: 048
     Dates: start: 20080401
  9. METOCLOPRAMIDE [Concomitant]
     Indication: DYSPEPSIA
     Dosage: 5MG THREE TIMES DAILY AS NEEDE
     Route: 048
     Dates: start: 20070101
  10. ALBUTEROL SULFATE [Concomitant]
     Indication: ASTHMA
     Dosage: 2 PUFFS AS NEEDED
     Route: 055
     Dates: start: 19940101
  11. ZINC/CALCIUM [Concomitant]
     Indication: DRUG USE FOR UNKNOWN INDICATION
     Route: 048
  12. SELENIUM [Concomitant]
     Indication: DRUG USE FOR UNKNOWN INDICATION
     Route: 048
  13. FISH OIL [Concomitant]
     Indication: DRUG USE FOR UNKNOWN INDICATION
     Route: 048
  14. ACETYLSALICYLIC ACID SRT [Concomitant]
     Indication: CARDIAC DISORDER
     Route: 048

REACTIONS (2)
  - ARTHRALGIA [None]
  - RASH [None]
